FAERS Safety Report 6440123-9 (Version None)
Quarter: 2009Q4

REPORT INFORMATION
  Report Type: 
  Country: None (occurrence: None)
  Receive Date: 20091113
  Receipt Date: 20090127
  Transmission Date: 20100525
  Serious: No
  Sender: FDA-Public Use
  Company Number: A0762686A

PATIENT
  Age: 72 Year
  Sex: Male
  Weight: 90.9 kg

DRUGS (4)
  1. CARVEDILOL [Suspect]
     Indication: HYPERTENSION
     Dosage: 6.25MG TWICE PER DAY
     Route: 048
     Dates: start: 20090102
  2. ZETIA [Concomitant]
  3. VITAMINS [Concomitant]
  4. ASPIRIN [Concomitant]

REACTIONS (1)
  - PALPITATIONS [None]
